FAERS Safety Report 4890502-6 (Version None)
Quarter: 2006Q1

REPORT INFORMATION
  Report Type: 
  Country: None (occurrence: None)
  Receive Date: 20060123
  Receipt Date: 20060123
  Transmission Date: 20060701
  Serious: Yes (Hospitalization, Other)
  Sender: FDA-Public Use
  Company Number: None

PATIENT
  Sex: Female
  Weight: 59 kg

DRUGS (3)
  1. CYTARABINE [Suspect]
     Indication: ACUTE MYELOID LEUKAEMIA
     Dosage: SEE IMAGE
     Route: 042
     Dates: start: 20051215
  2. DAUNOMYCIN [Suspect]
     Dosage: SEE IMAGE
     Route: 042
     Dates: start: 20051215
  3. ETOPOSIDE [Suspect]
     Dosage: SEE IMAGE
     Route: 042
     Dates: start: 20051215

REACTIONS (12)
  - ANGIOPATHY [None]
  - ASPERGILLOSIS [None]
  - ASPIRATION [None]
  - COUGH [None]
  - DYSPNOEA [None]
  - EJECTION FRACTION DECREASED [None]
  - HAEMOPTYSIS [None]
  - HYPOTENSION [None]
  - OXYGEN SATURATION DECREASED [None]
  - PLEURAL EFFUSION [None]
  - PNEUMONIA [None]
  - PNEUMOTHORAX [None]
